FAERS Safety Report 7519510-3 (Version None)
Quarter: 2011Q2

REPORT INFORMATION
  Report Type: 
  Country: None (occurrence: None)
  Receive Date: 20110602
  Receipt Date: 20110526
  Transmission Date: 20111010
  Serious: Yes (Life-Threatening, Other)
  Sender: FDA-Public Use
  Company Number: US-GENZYME-THYM-1002491

PATIENT
  Age: 37 Year
  Sex: Male

DRUGS (3)
  1. CORTICOSTEROIDS [Concomitant]
     Indication: IMMUNOSUPPRESSION
  2. MYCOPHENOLATE MEFETIL [Concomitant]
     Indication: IMMUNOSUPPRESSION
  3. THYMOGLOBULIN [Suspect]
     Indication: PROPHYLAXIS AGAINST TRANSPLANT REJECTION
     Dosage: UNK
     Route: 042

REACTIONS (6)
  - COMPLICATIONS OF TRANSPLANTED KIDNEY [None]
  - RENAL TUBULAR NECROSIS [None]
  - PERIRENAL HAEMATOMA [None]
  - HAEMODYNAMIC INSTABILITY [None]
  - KIDNEY RUPTURE [None]
  - HYPERKALAEMIA [None]
